FAERS Safety Report 8106055-5 (Version None)
Quarter: 2012Q1

REPORT INFORMATION
  Report Type: 
  Country: None (occurrence: None)
  Receive Date: 20120202
  Receipt Date: 20120126
  Transmission Date: 20120608
  Serious: Yes (Death, Other)
  Sender: FDA-Public Use
  Company Number: US-AMGEN-USASP2012005530

PATIENT
  Age: 37 Year
  Sex: Female

DRUGS (4)
  1. VICODIN [Concomitant]
  2. XANAX [Concomitant]
  3. ENBREL [Suspect]
     Indication: ANKYLOSING SPONDYLITIS
     Dosage: 50 MG, QWK
     Dates: start: 20030101, end: 20110101
  4. SELMAC [Concomitant]

REACTIONS (2)
  - MULTIPLE DRUG OVERDOSE ACCIDENTAL [None]
  - PULMONARY OEDEMA [None]
